FAERS Safety Report 24399162 (Version 4)
Quarter: 2024Q4

REPORT INFORMATION
  Report Type: Spontaneous
  Country: JP (occurrence: JP)
  Receive Date: 20241004
  Receipt Date: 20241230
  Transmission Date: 20250115
  Serious: Yes (Death)
  Sender: CARA THERAPEUTICS
  Company Number: JP-CARA THERAPEUTICS, INC.-2024-00432-JP

PATIENT
  Age: 86 Year
  Sex: Female

DRUGS (10)
  1. KORSUVA [Suspect]
     Active Substance: DIFELIKEFALIN ACETATE
     Indication: Product used for unknown indication
     Dosage: 17.5 ?G
     Route: 042
     Dates: start: 20240117, end: 20240510
  2. NESINA [Concomitant]
     Active Substance: ALOGLIPTIN BENZOATE
  3. VONOPRAZAN FUMARATE [Concomitant]
     Active Substance: VONOPRAZAN FUMARATE
  4. ALFACALCIDOL [Concomitant]
     Active Substance: ALFACALCIDOL
  5. WARFARIN [Concomitant]
     Active Substance: WARFARIN
  6. ISOSORBIDE [Concomitant]
     Active Substance: ISOSORBIDE
  7. FEXOFENADINE HYDROCHLORIDE [Concomitant]
     Active Substance: FEXOFENADINE HYDROCHLORIDE
  8. CELECOXIB [Concomitant]
     Active Substance: CELECOXIB
  9. REBAMIPIDE [Concomitant]
     Active Substance: REBAMIPIDE
  10. FERRIC CITRATE ANHYDROUS [Concomitant]
     Active Substance: FERRIC CITRATE ANHYDROUS

REACTIONS (1)
  - Pneumonia aspiration [Fatal]

NARRATIVE: CASE EVENT DATE: 20240512
